FAERS Safety Report 5015747-6 (Version None)
Quarter: 2006Q2

REPORT INFORMATION
  Report Type: 
  Country: None (occurrence: None)
  Receive Date: 20060601
  Receipt Date: 20060522
  Transmission Date: 20061013
  Serious: Yes (Other)
  Sender: FDA-Public Use
  Company Number: US-GILEAD-2006-0009651

PATIENT
  Sex: Male

DRUGS (5)
  1. EMTRIVA [Suspect]
     Indication: HIV INFECTION
     Dates: start: 20040101
  2. TENOFOVIR DISOPROXIL FUMARATE [Suspect]
     Indication: HIV INFECTION
     Dates: start: 20040101
  3. TRUVADA [Suspect]
     Indication: HIV INFECTION
     Dates: start: 20060301
  4. REYATAZ [Concomitant]
     Dates: start: 20040101
  5. NORVIR [Concomitant]
     Dates: start: 20040101

REACTIONS (2)
  - BLOOD GLUCOSE INCREASED [None]
  - OVERDOSE [None]
